FAERS Safety Report 4431111-2 (Version None)
Quarter: 2004Q3

REPORT INFORMATION
  Report Type: 
  Country: None (occurrence: None)
  Receive Date: 20040817
  Receipt Date: 20040805
  Transmission Date: 20050211
  Serious: Yes (Hospitalization)
  Sender: FDA-Public Use
  Company Number: 2004PK01353

PATIENT
  Age: 88 Year
  Sex: Female
  Weight: 60 kg

DRUGS (5)
  1. TENORETIC 100 [Suspect]
     Indication: ESSENTIAL HYPERTENSION
     Dosage: 0.5 DF DAILY PO
     Route: 048
     Dates: end: 20040629
  2. TORSEMIDE [Suspect]
     Indication: ESSENTIAL HYPERTENSION
     Dosage: 200 MG QD PO
     Route: 048
     Dates: start: 20040625, end: 20040629
  3. BLOPRESS [Suspect]
     Indication: ESSENTIAL HYPERTENSION
     Dosage: 8 MG DAILY PO
     Route: 048
     Dates: end: 20040629
  4. NORVASC [Concomitant]
  5. NITRODERM TTS5 [Concomitant]

REACTIONS (6)
  - DRUG INTERACTION [None]
  - FEAR [None]
  - FEELING ABNORMAL [None]
  - HYPONATRAEMIA [None]
  - SYNCOPE [None]
  - VOMITING [None]
